FAERS Safety Report 21468597 (Version 3)
Quarter: 2022Q4

REPORT INFORMATION
  Report Type: Spontaneous
  Country: JP (occurrence: JP)
  Receive Date: 20221017
  Receipt Date: 20221107
  Transmission Date: 20230113
  Serious: Yes (Other)
  Sender: FDA-Public Use
  Company Number: JP-BEH-2022150834

PATIENT
  Age: 24 Year
  Sex: Male

DRUGS (1)
  1. HIZENTRA [Suspect]
     Active Substance: HUMAN IMMUNOGLOBULIN G
     Indication: Chronic inflammatory demyelinating polyradiculoneuropathy
     Dosage: 12 GRAM, QW
     Route: 058
     Dates: start: 20221011

REACTIONS (8)
  - Presyncope [Recovered/Resolved]
  - Presyncope [Recovered/Resolved]
  - Hyperhidrosis [Recovered/Resolved]
  - Blood pressure decreased [Recovered/Resolved]
  - Dizziness [Recovered/Resolved]
  - Cold sweat [Recovered/Resolved]
  - No adverse event [Unknown]
  - Underdose [Unknown]

NARRATIVE: CASE EVENT DATE: 20221011
